FAERS Safety Report 7362449-7 (Version None)
Quarter: 2011Q1

REPORT INFORMATION
  Report Type: 
  Country: None (occurrence: None)
  Receive Date: 20110318
  Receipt Date: 20110309
  Transmission Date: 20110831
  Serious: Yes (Hospitalization)
  Sender: FDA-Public Use
  Company Number: DE-B.I. PHARMACEUTICALS,INC./RIDGEFIELD-2011-DE-01631DE

PATIENT
  Age: 69 Year
  Sex: Male
  Weight: 83 kg

DRUGS (5)
  1. OMEPRAZOLE [Concomitant]
     Indication: GASTROOESOPHAGEAL REFLUX DISEASE
     Dates: start: 19980401
  2. RAMIPRIL [Concomitant]
     Indication: HYPERTENSION
     Dates: start: 20051101
  3. SIMVASTATIN [Concomitant]
     Indication: HYPERCHOLESTEROLAEMIA
     Dates: start: 20030801
  4. TAMSULOSIN HCL [Suspect]
     Indication: BENIGN PROSTATIC HYPERPLASIA
     Dosage: 1 ANZ
     Route: 048
     Dates: start: 20091228
  5. ASPIRIN [Concomitant]
     Indication: PROPHYLAXIS
     Dates: start: 20050401

REACTIONS (7)
  - HYPERHIDROSIS [None]
  - ARTERIOSCLEROSIS [None]
  - HEADACHE [None]
  - AORTIC STENOSIS [None]
  - DIZZINESS [None]
  - FLUSHING [None]
  - TACHYCARDIA [None]
